FAERS Safety Report 17496641 (Version 4)
Quarter: 2020Q2

REPORT INFORMATION
  Report Type: Spontaneous
  Country: US (occurrence: US)
  Receive Date: 20200304
  Receipt Date: 20200414
  Transmission Date: 20200713
  Serious: No
  Sender: FDA-Public Use
  Company Number: US-SA-2020SA056331

PATIENT
  Age: 71 Year
  Sex: Female

DRUGS (1)
  1. PRALUENT [Suspect]
     Active Substance: ALIROCUMAB
     Indication: BLOOD CHOLESTEROL ABNORMAL
     Dosage: 75 MG, QOW

REACTIONS (3)
  - Injection site haemorrhage [Unknown]
  - Device difficult to use [Unknown]
  - Dysphagia [Unknown]

NARRATIVE: CASE EVENT DATE: 202001
